FAERS Safety Report 15642468 (Version 1)
Quarter: 2018Q4

REPORT INFORMATION
  Report Type: Spontaneous
  Country: GB (occurrence: GB)
  Receive Date: 20181121
  Receipt Date: 20181121
  Transmission Date: 20190205
  Serious: Yes (Life-Threatening)
  Sender: FDA-Public Use
  Company Number: GB-009507513-1811GBR007646

PATIENT
  Age: 79 Year
  Sex: Female

DRUGS (1)
  1. ERTAPENEM SODIUM [Suspect]
     Active Substance: ERTAPENEM SODIUM
     Indication: SEPSIS
     Dosage: 1 GRAM, QD
     Route: 041
     Dates: start: 20181028, end: 20181030

REACTIONS (1)
  - Stevens-Johnson syndrome [Unknown]
